FAERS Safety Report 5774327-5 (Version None)
Quarter: 2008Q2

REPORT INFORMATION
  Report Type: 
  Country: None (occurrence: None)
  Receive Date: 20080616
  Receipt Date: 20080605
  Transmission Date: 20081010
  Serious: Yes (Other)
  Sender: FDA-Public Use
  Company Number: PHEH2008US05109

PATIENT
  Age: 27 Year
  Sex: Female
  Weight: 58.957 kg

DRUGS (2)
  1. GLEEVEC [Suspect]
     Indication: CHRONIC LYMPHOCYTIC LEUKAEMIA
     Dosage: 600 MG, QD
     Route: 048
  2. VORICONAZOLE [Concomitant]
     Dosage: UNK
     Dates: start: 20080601

REACTIONS (2)
  - ATRIAL FLUTTER [None]
  - PALPITATIONS [None]
